FAERS Safety Report 25189737 (Version 1)
Quarter: 2025Q2

REPORT INFORMATION
  Report Type: Spontaneous
  Country: CH (occurrence: CH)
  Receive Date: 20250411
  Receipt Date: 20250411
  Transmission Date: 20250717
  Serious: Yes (Death, Other)
  Sender: IPSEN
  Company Number: CH-IPSEN Group, Research and Development-2025-08173

PATIENT
  Age: 76 Year
  Sex: Female

DRUGS (2)
  1. BOTULINUM TOXIN TYPE A [Suspect]
     Active Substance: BOTULINUM TOXIN TYPE A
     Indication: Oesophageal spasm
     Route: 065
  2. BOTULINUM TOXIN TYPE A [Suspect]
     Active Substance: BOTULINUM TOXIN TYPE A
     Indication: Off label use

REACTIONS (5)
  - Circulatory collapse [Fatal]
  - Haemorrhage [Fatal]
  - Aorto-oesophageal fistula [Unknown]
  - Vascular pseudoaneurysm [Unknown]
  - Off label use [Unknown]
